FAERS Safety Report 7404392-0 (Version None)
Quarter: 2011Q2

REPORT INFORMATION
  Report Type: 
  Country: None (occurrence: None)
  Receive Date: 20110408
  Receipt Date: 20110314
  Transmission Date: 20111010
  Serious: Yes (Hospitalization)
  Sender: FDA-Public Use
  Company Number: JP-ELI_LILLY_AND_COMPANY-JP201102007400

PATIENT
  Sex: Female

DRUGS (2)
  1. VANCOMYCIN [Suspect]
  2. PRASUGREL HYDROCHLORIDE [Suspect]
     Indication: ACUTE CORONARY SYNDROME
     Route: 048
     Dates: start: 20110215, end: 20110218

REACTIONS (2)
  - CARDIAC TAMPONADE [None]
  - MYOCARDIAL RUPTURE [None]
